FAERS Safety Report 16130783 (Version 1)
Quarter: 2019Q1

REPORT INFORMATION
  Report Type: Spontaneous
  Country: US (occurrence: US)
  Receive Date: 20190328
  Receipt Date: 20190328
  Transmission Date: 20190418
  Serious: Yes (Other)
  Sender: FDA-Public Use
  Company Number: PHEH2019US013561

PATIENT
  Age: 62 Year
  Sex: Female

DRUGS (6)
  1. DOXIL [Suspect]
     Active Substance: DOXORUBICIN HYDROCHLORIDE
     Indication: OVARIAN CANCER RECURRENT
     Dosage: UNK UNK, CYCLIC
     Route: 065
  2. DOXIL [Suspect]
     Active Substance: DOXORUBICIN HYDROCHLORIDE
     Dosage: UNK UNK, CYCLIC (FOURTH CYCLE)
     Route: 065
     Dates: start: 20130621
  3. G-CSF [Suspect]
     Active Substance: GRANULOCYTE COLONY-STIMULATING FACTOR NOS
     Indication: OVARIAN CANCER RECURRENT
     Dosage: UNK UNK, CYCLIC
     Route: 065
  4. CARBOPLATIN. [Suspect]
     Active Substance: CARBOPLATIN
     Dosage: UNK UNK, CYCLIC (FOURTH CYCLE)
     Route: 065
     Dates: start: 20130621
  5. G-CSF [Suspect]
     Active Substance: GRANULOCYTE COLONY-STIMULATING FACTOR NOS
     Dosage: UNK UNK, CYCLIC (FOURTH CYCLE)
     Route: 065
     Dates: start: 20130621
  6. CARBOPLATIN. [Suspect]
     Active Substance: CARBOPLATIN
     Indication: OVARIAN CANCER RECURRENT
     Dosage: UNK UNK, CYCLIC
     Route: 065

REACTIONS (2)
  - Subarachnoid haemorrhage [Unknown]
  - Pancytopenia [Unknown]
